FAERS Safety Report 6588554-0 (Version None)
Quarter: 2010Q1

REPORT INFORMATION
  Report Type: 
  Country: None (occurrence: None)
  Receive Date: 20100218
  Receipt Date: 20091123
  Transmission Date: 20100710
  Serious: No
  Sender: FDA-Public Use
  Company Number: US-ALLERGAN-0915001US

PATIENT
  Age: 50 Year
  Sex: Female
  Weight: 50.794 kg

DRUGS (2)
  1. BOTOX [Suspect]
     Indication: TORTICOLLIS
     Dosage: 100 UNITS, UNK
     Dates: start: 20091009, end: 20091009
  2. VOLTAREN [Suspect]
     Indication: INFLAMMATION

REACTIONS (1)
  - INJECTION SITE PAIN [None]
